FAERS Safety Report 4866874-5 (Version None)
Quarter: 2005Q4

REPORT INFORMATION
  Report Type: 
  Country: None (occurrence: None)
  Receive Date: 20051222
  Receipt Date: 20051205
  Transmission Date: 20060501
  Serious: Yes (Hospitalization)
  Sender: FDA-Public Use
  Company Number: DE200512000819

PATIENT
  Sex: Female

DRUGS (1)
  1. TERIPARATIDE           (TERIPARATIDE) [Suspect]
     Indication: OSTEOPOROSIS

REACTIONS (2)
  - SPINAL CORD COMPRESSION [None]
  - SPINAL FRACTURE [None]
